FAERS Safety Report 5250742-3 (Version None)
Quarter: 2007Q1

REPORT INFORMATION
  Report Type: 
  Country: None (occurrence: None)
  Receive Date: 20070228
  Receipt Date: 20060724
  Transmission Date: 20070707
  Serious: No
  Sender: FDA-Public Use
  Company Number: US-GLAXOSMITHKLINE-A0610805A

PATIENT
  Age: 20 Year
  Sex: Female
  Weight: 58.6 kg

DRUGS (6)
  1. LAMICTAL [Suspect]
     Indication: BIPOLAR DISORDER
     Dosage: 225MG PER DAY
     Route: 048
  2. ZOVIA 1/35E-21 [Concomitant]
     Indication: ORAL CONTRACEPTION
     Route: 048
  3. ATIVAN [Concomitant]
  4. RISPERDAL [Concomitant]
  5. TRAZODONE HCL [Concomitant]
  6. ZOLOFT [Concomitant]
     Dosage: 125MG PER DAY
     Route: 048

REACTIONS (2)
  - NECK PAIN [None]
  - PHARYNGOLARYNGEAL PAIN [None]
